FAERS Safety Report 14045095 (Version 1)
Quarter: 2017Q4

REPORT INFORMATION
  Report Type: Report from Study
  Country: US (occurrence: US)
  Receive Date: 20171005
  Receipt Date: 20171005
  Transmission Date: 20180321
  Serious: Yes (Hospitalization)
  Sender: FDA-Public Use
  Company Number: US-HORIZON-KRY-0112-2017

PATIENT
  Age: 57 Year
  Sex: Male

DRUGS (1)
  1. KRYSTEXXA [Suspect]
     Active Substance: PEGLOTICASE
     Indication: GOUT
     Dosage: Q2 WEEKS
     Route: 042

REACTIONS (3)
  - Blood pressure decreased [Recovered/Resolved]
  - Anxiety [Recovered/Resolved]
  - Chest pain [Recovered/Resolved]
